FAERS Safety Report 8530579-X (Version None)
Quarter: 2012Q2

REPORT INFORMATION
  Report Type: 
  Country: None (occurrence: None)
  Receive Date: 20120411
  Receipt Date: 20120306
  Transmission Date: 20120825
  Serious: No
  Sender: FDA-Public Use
  Company Number: PHEH2011US012113

PATIENT
  Age: 13 Year
  Sex: Female
  Weight: 43 kg

DRUGS (3)
  1. ILARIS [Suspect]
     Indication: CRYOPYRIN ASSOCIATED PERIODIC SYNDROME
     Dosage: 80 MG EVERY 2 WEEKS, SUBCUTANEOUS
     Route: 058
     Dates: start: 20111101
  2. IBUPROFEN [Concomitant]
  3. MELOXICAM [Concomitant]

REACTIONS (12)
  - EYE PAIN [None]
  - PARANASAL SINUS DISCOMFORT [None]
  - INCREASED VISCOSITY OF NASAL SECRETION [None]
  - NASAL CONGESTION [None]
  - TONSILLAR HYPERTROPHY [None]
  - MUSCLE STRAIN [None]
  - BACK PAIN [None]
  - MYALGIA [None]
  - SINUSITIS [None]
  - RHINITIS [None]
  - UPPER RESPIRATORY TRACT INFECTION [None]
  - HEADACHE [None]
